FAERS Safety Report 7961731-X (Version None)
Quarter: 2011Q4

REPORT INFORMATION
  Report Type: 
  Country: None (occurrence: None)
  Receive Date: 20111207
  Receipt Date: 20111201
  Transmission Date: 20120403
  Serious: Yes (Hospitalization, Other)
  Sender: FDA-Public Use
  Company Number: FR-PFIZER INC-2011293274

PATIENT
  Age: 34 Year
  Sex: Male

DRUGS (19)
  1. ATORVASTATIN CALCIUM [Suspect]
     Dosage: 10 MG, 1X/DAY
     Route: 048
     Dates: end: 20111020
  2. NEOSYNEPHRINE BADRIAL [Concomitant]
     Dosage: UNK
     Dates: start: 20111020
  3. HEPARIN [Concomitant]
     Dosage: UNK
     Dates: start: 20111020
  4. AUGMENTIN [Suspect]
     Dosage: 1 G, 3X/DAY
     Dates: start: 20111021, end: 20111028
  5. PERINDOPRIL ERBUMINE [Concomitant]
     Dosage: 2.5 MG A DAY
  6. PROPOFOL [Concomitant]
     Dosage: UNK
     Dates: start: 20111020, end: 20111023
  7. LOVENOX [Concomitant]
     Dosage: UNK
     Dates: start: 20111020
  8. ATORVASTATIN CALCIUM [Suspect]
     Dosage: 40 MG, 1X/DAY
     Dates: start: 20111021, end: 20111028
  9. ERYTHROMYCIN [Suspect]
     Dosage: UNK
     Dates: start: 20111025, end: 20111026
  10. TERCIAN [Suspect]
     Dosage: UNK
     Dates: start: 20111026, end: 20111028
  11. EUPRESSYL [Suspect]
     Dosage: UNK
     Dates: start: 20111026, end: 20111029
  12. NOREPINEPHRINE BITARTRATE [Concomitant]
     Dosage: UNK
     Dates: start: 20111020
  13. NICOTINE [Concomitant]
     Dosage: 1 DF A DAY
  14. NICOTINE [Concomitant]
     Dosage: AS NEDDED
  15. SUCRALFATE [Concomitant]
     Dosage: UNK
     Dates: start: 20111020
  16. ASPIRIN [Concomitant]
     Dosage: 160 MG A DAY
  17. CURARE ALKALOIDS [Concomitant]
     Dosage: UNK
     Dates: start: 20111020, end: 20111023
  18. NICARDIPINE HCL [Concomitant]
     Dosage: UNK
     Dates: start: 20111020
  19. VITAMIN B COMPLEX TAB [Concomitant]
     Dosage: UNK
     Dates: start: 20111020

REACTIONS (2)
  - CEREBROVASCULAR ACCIDENT [None]
  - MIXED LIVER INJURY [None]
